FAERS Safety Report 24612074 (Version 2)
Quarter: 2025Q1

REPORT INFORMATION
  Report Type: Report from Study
  Country: DE (occurrence: DE)
  Receive Date: 20241113
  Receipt Date: 20250112
  Transmission Date: 20250409
  Serious: Yes (Hospitalization)
  Sender: JOHNSON AND JOHNSON
  Company Number: DE-JNJFOC-20241123635

PATIENT
  Age: 15 Year
  Sex: Male
  Weight: 74 kg

DRUGS (9)
  1. REMICADE [Suspect]
     Active Substance: INFLIXIMAB
     Indication: Crohn^s disease
     Route: 041
     Dates: start: 201501
  2. REMICADE [Suspect]
     Active Substance: INFLIXIMAB
     Route: 041
     Dates: start: 20210907, end: 20211008
  3. HUMIRA [Concomitant]
     Active Substance: ADALIMUMAB
     Dates: start: 20151207, end: 20160418
  4. HUMIRA [Concomitant]
     Active Substance: ADALIMUMAB
  5. ENTYVIO [Concomitant]
     Active Substance: VEDOLIZUMAB
     Dates: start: 20160513, end: 20180602
  6. STELARA [Concomitant]
     Active Substance: USTEKINUMAB
     Dates: start: 20180803, end: 20210524
  7. STELARA [Concomitant]
     Active Substance: USTEKINUMAB
     Dates: start: 20220823, end: 202311
  8. ADALIMUMAB [Concomitant]
     Active Substance: ADALIMUMAB
     Dates: start: 20220317, end: 20230415
  9. METHOTREXATE [Concomitant]
     Active Substance: METHOTREXATE

REACTIONS (1)
  - Crohn^s disease [Recovered/Resolved]

NARRATIVE: CASE EVENT DATE: 20240131
